FAERS Safety Report 8923793 (Version 5)
Quarter: 2013Q4

REPORT INFORMATION
  Report Type: Report from Study
  Country: DE (occurrence: DE)
  Receive Date: 20121126
  Receipt Date: 20131225
  Transmission Date: 20140711
  Serious: Yes (Other)
  Sender: FDA-Public Use
  Company Number: DE-ROCHE-1159542

PATIENT
  Sex: 0
  Weight: 73 kg

DRUGS (5)
  1. RANIBIZUMAB [Suspect]
     Indication: AGE-RELATED MACULAR DEGENERATION
     Route: 050
     Dates: start: 20120720
  2. RANIBIZUMAB [Suspect]
     Route: 050
     Dates: start: 20120801
  3. RANIBIZUMAB [Suspect]
     Route: 050
     Dates: start: 20130220
  4. RANIBIZUMAB [Suspect]
     Route: 050
     Dates: start: 20130318
  5. RANIBIZUMAB [Suspect]
     Route: 050
     Dates: start: 20130508, end: 20130508

REACTIONS (6)
  - Retinal detachment [Unknown]
  - Retinal cyst [Recovered/Resolved]
  - Detachment of retinal pigment epithelium [Recovered/Resolved]
  - Retinal haemorrhage [Not Recovered/Not Resolved]
  - Retinal oedema [Unknown]
  - Visual acuity reduced [Unknown]
